FAERS Safety Report 9341918 (Version 1)
Quarter: 2013Q2

REPORT INFORMATION
  Report Type: Spontaneous
  Country: JP (occurrence: JP)
  Receive Date: 20130611
  Receipt Date: 20130611
  Transmission Date: 20140414
  Serious: Yes (Death)
  Sender: FDA-Public Use
  Company Number: JP-SUCAMPO PHARMA AMERICAS, INC-SPI201300392

PATIENT
  Age: 87 Year
  Sex: Male
  Weight: 49 kg

DRUGS (9)
  1. AMITIZA [Suspect]
     Indication: CONSTIPATION
     Dosage: 24 MCG, BID
     Route: 048
     Dates: start: 20130319, end: 20130410
  2. WARFARIN [Concomitant]
     Indication: ATRIAL FIBRILLATION
     Dosage: 1 MG, QD
     Route: 048
     Dates: start: 20120202, end: 20130519
  3. BUFFERIN [Concomitant]
     Indication: ANGINA PECTORIS
     Dosage: 81 MG, QD
     Route: 048
     Dates: start: 20120202, end: 20130519
  4. NORVASC [Concomitant]
     Indication: HYPERTENSION
     Dosage: 5 MG, QD
     Route: 048
     Dates: end: 20130519
  5. TAKEPRON [Concomitant]
     Indication: GASTROOESOPHAGEAL REFLUX DISEASE
     Dosage: 15 MG, QD
     Route: 048
  6. HARNAL D [Concomitant]
     Indication: BENIGN PROSTATIC HYPERPLASIA
     Dosage: 0.2 MG, QD
     Dates: start: 20120918, end: 20130519
  7. LOXONIN [Concomitant]
     Indication: SPINAL OSTEOARTHRITIS
     Dosage: 60 UNK, UNK
     Route: 048
     Dates: end: 20130519
  8. EVIPROSTAT DB [Concomitant]
     Indication: BENIGN PROSTATIC HYPERPLASIA
     Dosage: UNK UNK, TID
     Route: 048
     Dates: start: 20120918, end: 20130519
  9. SENNARIDE [Concomitant]
     Indication: CONSTIPATION
     Dosage: 24 MCG, PRN
     Route: 048

REACTIONS (1)
  - Acute myocardial infarction [Fatal]
